FAERS Safety Report 13657226 (Version 1)
Quarter: 2017Q2

REPORT INFORMATION
  Report Type: Spontaneous
  Country: GB (occurrence: GB)
  Receive Date: 20170615
  Receipt Date: 20170615
  Transmission Date: 20170830
  Serious: Yes (Other)
  Sender: FDA-Public Use
  Company Number: GB-JNJFOC-20170609475

PATIENT

DRUGS (1)
  1. INFLIXIMAB [Suspect]
     Active Substance: INFLIXIMAB
     Indication: INFLAMMATORY BOWEL DISEASE
     Route: 042

REACTIONS (20)
  - Arthralgia [Unknown]
  - Fatigue [Unknown]
  - Drug effect decreased [Unknown]
  - Immune system disorder [Unknown]
  - Abdominal distension [Unknown]
  - Drug ineffective [Unknown]
  - Paraesthesia [Unknown]
  - Rash [Unknown]
  - Treatment noncompliance [Unknown]
  - Tinnitus [Unknown]
  - Dyspepsia [Unknown]
  - Arthropathy [Unknown]
  - Headache [Unknown]
  - Chest pain [Unknown]
  - Breast cancer [Unknown]
  - Malaise [Unknown]
  - Infection [Unknown]
  - Depression [Unknown]
  - Infusion related reaction [Unknown]
  - Dyspnoea [Unknown]
